FAERS Safety Report 11189810 (Version 2)
Quarter: 2015Q2

REPORT INFORMATION
  Report Type: Spontaneous
  Country: US (occurrence: US)
  Receive Date: 20150615
  Receipt Date: 20150616
  Transmission Date: 20150821
  Serious: Yes (Other)
  Sender: FDA-Public Use
  Company Number: US-GE HEALTHCARE MEDICAL DIAGNOSTICS-OSCN-PR-1506L-0122

PATIENT
  Age: 21 Year
  Sex: Male

DRUGS (2)
  1. GADOLINIUM (UNSPECIFIED) [Suspect]
     Active Substance: GADOLINIUM
     Indication: SYNCOPE
     Route: 065
  2. GADOLINIUM (UNSPECIFIED) [Suspect]
     Active Substance: GADOLINIUM
     Indication: DIAGNOSTIC PROCEDURE

REACTIONS (2)
  - False positive investigation result [Unknown]
  - Nuclear magnetic resonance imaging brain abnormal [Unknown]
